FAERS Safety Report 22337748 (Version 1)
Quarter: 2023Q2

REPORT INFORMATION
  Report Type: Spontaneous
  Country: US (occurrence: US)
  Receive Date: 20230518
  Receipt Date: 20230518
  Transmission Date: 20230722
  Serious: Yes (Other)
  Sender: FDA-Public Use
  Company Number: US-COLLEGIUM PHARMACEUTICAL, INC.-2022CGM00315

PATIENT
  Sex: Female

DRUGS (9)
  1. OXYCODONE [Suspect]
     Active Substance: OXYCODONE
     Dosage: COMBINATION WITH OXYCONTIN, TO 550 MG
     Dates: start: 2013
  2. OXYCODONE [Suspect]
     Active Substance: OXYCODONE
     Dosage: TAPERED DOWN TO ABOUT 60 MG
  3. OXYCODONE [Suspect]
     Active Substance: OXYCODONE
     Dosage: NOW AT 20 MG
  4. OXYCODONE [Suspect]
     Active Substance: OXYCODONE
  5. OXYCONTIN [Suspect]
     Active Substance: OXYCODONE HYDROCHLORIDE
     Dosage: COMBINATION WITH OXYCODONE, TO 550 MG
     Dates: start: 2013
  6. OXYCONTIN [Suspect]
     Active Substance: OXYCODONE HYDROCHLORIDE
     Dosage: TAPERED DOWN TO ABOUT 60 MG
  7. OXYCONTIN [Suspect]
     Active Substance: OXYCODONE HYDROCHLORIDE
     Dosage: NOW AT 20 MG
  8. OXYCONTIN [Suspect]
     Active Substance: OXYCODONE HYDROCHLORIDE
  9. UNSPECIFIED INGREDIENT [Suspect]
     Active Substance: UNSPECIFIED INGREDIENT

REACTIONS (7)
  - Dependence [Unknown]
  - Syncope [Recovered/Resolved]
  - Injury [Not Recovered/Not Resolved]
  - Loss of personal independence in daily activities [Not Recovered/Not Resolved]
  - Drug ineffective [Not Recovered/Not Resolved]
  - Blood pressure decreased [Unknown]
  - Drug ineffective [Not Recovered/Not Resolved]
